FAERS Safety Report 8996704 (Version 5)
Quarter: 2013Q3

REPORT INFORMATION
  Report Type: Spontaneous
  Country: DE (occurrence: None)
  Receive Date: 20121220
  Receipt Date: 20130708
  Transmission Date: 20140515
  Serious: Yes (Hospitalization)
  Sender: FDA-Public Use
  Company Number: ACO_33314_2012

PATIENT
  Age: 68 Year
  Sex: Male
  Weight: 95 kg

DRUGS (3)
  1. FAMPRIDINE [Suspect]
     Indication: MULTIPLE SCLEROSIS
     Route: 048
     Dates: start: 20120709
  2. RAMIPRIL (RAMIPRIL) [Concomitant]
  3. METOPROLOL (METOPROLOL TARTRATE) [Concomitant]

REACTIONS (13)
  - Cerebrovascular accident [None]
  - Glycosylated haemoglobin increased [None]
  - Low density lipoprotein increased [None]
  - Mitral valve incompetence [None]
  - Cardiac valve disease [None]
  - Aortic arteriosclerosis [None]
  - Heart rate abnormal [None]
  - Supraventricular extrasystoles [None]
  - Ventricular extrasystoles [None]
  - Oedema peripheral [None]
  - Cerebral infarction [None]
  - Leukoencephalopathy [None]
  - Cerebral atrophy [None]
